FAERS Safety Report 4678980-9 (Version None)
Quarter: 2005Q2

REPORT INFORMATION
  Report Type: 
  Country: None (occurrence: None)
  Receive Date: 20050531
  Receipt Date: 20050525
  Transmission Date: 20051028
  Serious: Yes (Life-Threatening, Hospitalization, Disabling)
  Sender: FDA-Public Use
  Company Number: A0560141A

PATIENT
  Age: 42 Year
  Sex: Male

DRUGS (5)
  1. WELLBUTRIN XL [Suspect]
     Indication: DEPRESSION
     Dosage: PER DAY/ORAL
     Route: 048
     Dates: start: 20050516, end: 20050523
  2. KETOROLAC TROMETAMOL [Concomitant]
  3. METOPROLOL SUCCINATE [Concomitant]
  4. TRAMADOL HCL [Concomitant]
  5. LORTAB [Concomitant]

REACTIONS (5)
  - ACCIDENTAL OVERDOSE [None]
  - AMNESIA [None]
  - CONFUSIONAL STATE [None]
  - DISORIENTATION [None]
  - THERAPY NON-RESPONDER [None]
